FAERS Safety Report 19183071 (Version 1)
Quarter: 2021Q2

REPORT INFORMATION
  Report Type: Spontaneous
  Country: CN (occurrence: CN)
  Receive Date: 20210426
  Receipt Date: 20210426
  Transmission Date: 20210717
  Serious: Yes (Hospitalization)
  Sender: FDA-Public Use
  Company Number: CN-BAXTER-2021BAX008456

PATIENT
  Age: 68 Year
  Sex: Male
  Weight: 51 kg

DRUGS (18)
  1. ENDOXAN [Suspect]
     Active Substance: CYCLOPHOSPHAMIDE
     Indication: LYMPHOMA
     Dosage: DAY 2; CYCLOPHOSPHAMIDE 1185 MG + SODIUM CHLORIDE 250 ML
     Route: 041
     Dates: start: 20210313, end: 20210313
  2. RITUXIMAB. [Suspect]
     Active Substance: RITUXIMAB
     Dosage: DOSE RE?INTRODUCED; RITUXIMAB + SODIUM CHLORIDE
     Route: 041
  3. PREDNISONE ACETATE [Suspect]
     Active Substance: PREDNISONE ACETATE
     Dosage: DOSAGE FORM: TABLET; DOSE RE?INTRODUCED
     Route: 048
  4. SODIUM CHLORIDE. [Suspect]
     Active Substance: SODIUM CHLORIDE
     Dosage: DOSE RE?INTRODUCED, EPIRUBICIN HYDROCHLORIDE + SODIUM CHLORIDE
     Route: 041
  5. VINDESINE SULFATE [Suspect]
     Active Substance: VINDESINE SULFATE
     Dosage: DOSE RE?INTRODUCED; VINDESINE SULFATE + GLUCOSE
     Route: 041
  6. SODIUM CHLORIDE. [Suspect]
     Active Substance: SODIUM CHLORIDE
     Dosage: DAY 2: EPIRUBICIN HYDROCHLORIDE 110 MG + SODIUM CHLORIDE 250 ML
     Route: 041
     Dates: start: 20210313, end: 20210313
  7. ENDOXAN [Suspect]
     Active Substance: CYCLOPHOSPHAMIDE
     Dosage: DOSE RE?INTRODUCED, CYCLOPHOSPHAMIDE + SODIUM CHLORIDE
     Route: 041
  8. EPIRUBICIN HYDROCHLORIDE. [Suspect]
     Active Substance: EPIRUBICIN HYDROCHLORIDE
     Dosage: DOSE RE?INTRODUCED, EPIRUBICIN HYDROCHLORIDE + SODIUM CHLORIDE
     Route: 041
  9. RITUXIMAB. [Suspect]
     Active Substance: RITUXIMAB
     Indication: LYMPHOMA
     Dosage: DAY 1; RITUXIMAB 600 MG + SODIUM CHLORIDE 100 ML
     Route: 041
     Dates: start: 20210312, end: 20210312
  10. VINDESINE SULFATE [Suspect]
     Active Substance: VINDESINE SULFATE
     Indication: LYMPHOMA
     Dosage: DAY 2; VINDESINE SULFATE 2 MG + GLUCOSE 500 ML
     Route: 041
     Dates: start: 20210313, end: 20210313
  11. PREDNISONE ACETATE [Suspect]
     Active Substance: PREDNISONE ACETATE
     Indication: LYMPHOMA
     Dosage: DOSAGE FORM: TABLET; DAY 2 TO 6
     Route: 048
     Dates: start: 20210313, end: 20210317
  12. SODIUM CHLORIDE. [Suspect]
     Active Substance: SODIUM CHLORIDE
     Dosage: DAY 1; RITUXIMAB 600 MG + SODIUM CHLORIDE 100 ML
     Route: 041
     Dates: start: 20210312, end: 20210312
  13. GLUCOSE [Suspect]
     Active Substance: DEXTROSE
     Indication: MEDICATION DILUTION
     Dosage: DAY 2; VINDESINE SULFATE 2 MG + GLUCOSE 500 ML
     Route: 041
     Dates: start: 20210313, end: 20210313
  14. EPIRUBICIN HYDROCHLORIDE. [Suspect]
     Active Substance: EPIRUBICIN HYDROCHLORIDE
     Indication: LYMPHOMA
     Dosage: DAY 2: EPIRUBICIN HYDROCHLORIDE 110 MG + SODIUM CHLORIDE 250 ML
     Route: 041
     Dates: start: 20210313, end: 20210313
  15. SODIUM CHLORIDE. [Suspect]
     Active Substance: SODIUM CHLORIDE
     Dosage: DOSE RE?INTRODUCED, CYCLOPHOSPHAMIDE + SODIUM CHLORIDE
     Route: 041
  16. GLUCOSE [Suspect]
     Active Substance: DEXTROSE
     Dosage: DOSE RE?INTRODUCED; VINDESINE SULFATE + GLUCOSE
     Route: 041
  17. SODIUM CHLORIDE. [Suspect]
     Active Substance: SODIUM CHLORIDE
     Indication: MEDICATION DILUTION
     Dosage: DAY 2; CYCLOPHOSPHAMIDE 1185 MG + SODIUM CHLORIDE 250 ML
     Route: 041
     Dates: start: 20210313, end: 20210313
  18. SODIUM CHLORIDE. [Suspect]
     Active Substance: SODIUM CHLORIDE
     Dosage: DOSE RE?INTRODUCED; RITUXIMAB + SODIUM CHLORIDE
     Route: 041

REACTIONS (2)
  - Myelosuppression [Not Recovered/Not Resolved]
  - Blood potassium decreased [Not Recovered/Not Resolved]

NARRATIVE: CASE EVENT DATE: 20210324
